FAERS Safety Report 9264835 (Version 1)
Quarter: 2013Q2

REPORT INFORMATION
  Report Type: Spontaneous
  Country: US (occurrence: None)
  Receive Date: 20130426
  Receipt Date: 20130426
  Transmission Date: 20140414
  Serious: Yes (Hospitalization)
  Sender: FDA-Public Use
  Company Number: DSU-2013-03022

PATIENT
  Age: 83 Year
  Sex: Male

DRUGS (4)
  1. BENICAR [Suspect]
     Indication: HYPERTENSION
     Route: 048
     Dates: start: 2012
  2. BENICAR [Suspect]
     Route: 048
     Dates: start: 2012
  3. NORVASC [Suspect]
     Indication: HYPERTENSION
     Dates: start: 2013, end: 201303
  4. COREG (CARVEDILOL) -UNKNOWN- (CARVEDILOL) [Concomitant]

REACTIONS (3)
  - Blood pressure increased [None]
  - Joint swelling [None]
  - Eyelid oedema [None]
